FAERS Safety Report 4878752-6 (Version None)
Quarter: 2006Q1

REPORT INFORMATION
  Report Type: 
  Country: None (occurrence: None)
  Receive Date: 20060112
  Receipt Date: 20051214
  Transmission Date: 20060701
  Serious: Yes (Other)
  Sender: FDA-Public Use
  Company Number: CN-SANOFI-SYNTHELABO-A01200508680

PATIENT
  Sex: Female
  Weight: 80 kg

DRUGS (4)
  1. PLAVIX [Suspect]
     Indication: ANTIPLATELET THERAPY
     Route: 048
     Dates: start: 20051114
  2. PLAVIX [Suspect]
     Indication: CORONARY ANGIOPLASTY
     Route: 048
     Dates: start: 20051114
  3. ASPIRIN [Concomitant]
     Dosage: 0.3 G
     Route: 048
     Dates: start: 20051114
  4. ISOSORBIDE MONONITRATE [Concomitant]
     Indication: CORONARY ARTERY DISEASE
     Dosage: 60 MG
     Route: 048
     Dates: start: 20051114

REACTIONS (5)
  - CONFUSIONAL STATE [None]
  - HALLUCINATION [None]
  - MENTAL DISORDER [None]
  - RESTLESSNESS [None]
  - SPEECH DISORDER [None]
